FAERS Safety Report 6185119-X (Version None)
Quarter: 2009Q2

REPORT INFORMATION
  Report Type: 
  Country: None (occurrence: None)
  Receive Date: 20090507
  Receipt Date: 20090430
  Transmission Date: 20091009
  Serious: Yes (Other)
  Sender: FDA-Public Use
  Company Number: WAES 0905USA00147

PATIENT
  Age: 70 Year
  Sex: Female

DRUGS (2)
  1. ZOLINZA [Suspect]
     Indication: MANTLE CELL LYMPHOMA
     Dosage: 400 MG/UNK/PO
     Route: 048
     Dates: start: 20081020, end: 20081117
  2. VELCADE [Suspect]
     Indication: MANTLE CELL LYMPHOMA
     Dosage: 1.3 MG/M[2]/DAILY/IV
     Route: 042
     Dates: start: 20081020, end: 20081117

REACTIONS (6)
  - BALANCE DISORDER [None]
  - FATIGUE [None]
  - HERPES ZOSTER [None]
  - LYMPHOPENIA [None]
  - OPPORTUNISTIC INFECTION [None]
  - PARAESTHESIA [None]
